FAERS Safety Report 8517412-7 (Version None)
Quarter: 2012Q3

REPORT INFORMATION
  Report Type: 
  Country: None (occurrence: None)
  Receive Date: 20120718
  Receipt Date: 20120716
  Transmission Date: 20120928
  Serious: Yes (Other)
  Sender: FDA-Public Use
  Company Number: HR-ROCHE-1088426

PATIENT
  Age: 71 Year
  Sex: Male

DRUGS (2)
  1. PROPRANOLOL [Concomitant]
     Indication: ESSENTIAL TREMOR
     Route: 048
     Dates: start: 20120516
  2. CLONAZEPAM [Suspect]
     Indication: ESSENTIAL TREMOR
     Route: 048
     Dates: start: 20120516, end: 20120526

REACTIONS (1)
  - SLEEP APNOEA SYNDROME [None]
